FAERS Safety Report 20171443 (Version 3)
Quarter: 2022Q2

REPORT INFORMATION
  Report Type: Other
  Country: PL (occurrence: None)
  Receive Date: 20211210
  Receipt Date: 20220602
  Transmission Date: 20220721
  Serious: Yes (Other)
  Sender: FDA-Public Use
  Company Number: PL-ROCHE-2976661

PATIENT
  Age: 61 Year
  Sex: Male
  Weight: 80.5 kg

DRUGS (10)
  1. ATEZOLIZUMAB [Suspect]
     Active Substance: ATEZOLIZUMAB
     Indication: Non-small cell lung cancer
     Dosage: ON 13/OCT/2021, RECEIVED MOST RECENT DOSE 1200 MG OF ATEZOLIZUMAB PRIOR TO ADVERSE EVENT (AE)
     Route: 041
     Dates: start: 20200813
  2. CORONAL [Concomitant]
  3. HYDROCHLOROTHIAZIDE\TELMISARTAN [Concomitant]
     Active Substance: HYDROCHLOROTHIAZIDE\TELMISARTAN
     Dosage: 80/12.5
  4. PLAVIX [Concomitant]
     Active Substance: CLOPIDOGREL BISULFATE
     Indication: Prophylaxis
  5. OXYDOLOR [Concomitant]
     Indication: Prophylaxis
     Dates: start: 20210901
  6. ROSUVASTATIN [Concomitant]
     Active Substance: ROSUVASTATIN
  7. CILOSTOP [Concomitant]
  8. XARELTO [Concomitant]
     Active Substance: RIVAROXABAN
     Dates: start: 20220428, end: 20220519
  9. XARELTO [Concomitant]
     Active Substance: RIVAROXABAN
     Dates: start: 20220520
  10. FENTANYL [Concomitant]
     Active Substance: FENTANYL
     Indication: Prophylaxis
     Dates: start: 20220421

REACTIONS (1)
  - Renal failure [Recovering/Resolving]

NARRATIVE: CASE EVENT DATE: 20211104
